FAERS Safety Report 8238203-0 (Version None)
Quarter: 2012Q1

REPORT INFORMATION
  Report Type: 
  Country: None (occurrence: None)
  Receive Date: 20120327
  Receipt Date: 20120314
  Transmission Date: 20120608
  Serious: Yes (Other)
  Sender: FDA-Public Use
  Company Number: PHHY2012ES023462

PATIENT
  Age: 17 Year
  Sex: Male

DRUGS (1)
  1. CYCLOSPORINE [Suspect]
     Dosage: UNK UKN, UNK

REACTIONS (2)
  - LYMPHOMA [None]
  - GRANULOCYTOPENIA [None]
